FAERS Safety Report 7037904-X (Version None)
Quarter: 2010Q4

REPORT INFORMATION
  Report Type: 
  Country: None (occurrence: None)
  Receive Date: 20101011
  Receipt Date: 20100930
  Transmission Date: 20110411
  Serious: Yes (Hospitalization, Other)
  Sender: FDA-Public Use
  Company Number: US-BAXTER-2010BH024439

PATIENT
  Age: 6 Year
  Sex: Female
  Weight: 25 kg

DRUGS (3)
  1. STERILE WATER FOR INJECTION IN PLASTIC CONTAINER [Suspect]
     Indication: MEDICATION DILUTION
     Route: 042
     Dates: start: 20100922, end: 20100922
  2. STERILE WATER FOR INJECTION IN PLASTIC CONTAINER [Suspect]
     Indication: SEPSIS
     Route: 042
     Dates: start: 20100922, end: 20100922
  3. CEFTRIAXONE [Suspect]
     Indication: SEPSIS
     Route: 042
     Dates: start: 20100922, end: 20100922

REACTIONS (1)
  - CHILLS [None]
